FAERS Safety Report 7107649-6 (Version None)
Quarter: 2010Q4

REPORT INFORMATION
  Report Type: 
  Country: None (occurrence: None)
  Receive Date: 20101117
  Receipt Date: 20101104
  Transmission Date: 20110411
  Serious: Yes (Hospitalization, Other)
  Sender: FDA-Public Use
  Company Number: US-ELI_LILLY_AND_COMPANY-US201009006798

PATIENT
  Sex: Female

DRUGS (3)
  1. FORTEO [Suspect]
     Indication: OSTEOPOROSIS
     Dosage: 20 UG, DAILY (1/D)
  2. TEGRETOL [Concomitant]
  3. MORPHINE [Concomitant]
     Dosage: 400 MG, DAILY (1/D)

REACTIONS (9)
  - CELLULITIS [None]
  - COMA [None]
  - DRUG LEVEL INCREASED [None]
  - DRUG WITHDRAWAL SYNDROME [None]
  - FEELING ABNORMAL [None]
  - INFECTION [None]
  - MENTAL IMPAIRMENT [None]
  - MOBILITY DECREASED [None]
  - SOMNOLENCE [None]
